FAERS Safety Report 23546625 (Version 8)
Quarter: 2025Q1

REPORT INFORMATION
  Report Type: Report from Study
  Country: US (occurrence: US)
  Receive Date: 20240221
  Receipt Date: 20250326
  Transmission Date: 20250409
  Serious: Yes (Hospitalization, Other)
  Sender: TAKEDA
  Company Number: US-TAKEDA-2022TUS092621

PATIENT
  Age: 64 Year
  Sex: Female
  Weight: 56.68 kg

DRUGS (29)
  1. HUMAN IMMUNOGLOBULIN G [Suspect]
     Active Substance: HUMAN IMMUNOGLOBULIN G
     Indication: Polyneuropathy
  2. HUMAN IMMUNOGLOBULIN G [Suspect]
     Active Substance: HUMAN IMMUNOGLOBULIN G
  3. HUMAN IMMUNOGLOBULIN G [Suspect]
     Active Substance: HUMAN IMMUNOGLOBULIN G
  4. HUMAN IMMUNOGLOBULIN G [Suspect]
     Active Substance: HUMAN IMMUNOGLOBULIN G
     Dosage: 90 GRAM, Q4WEEKS
  5. ACETAMINOPHEN [Concomitant]
     Active Substance: ACETAMINOPHEN
  6. EPINEPHRINE [Concomitant]
     Active Substance: EPINEPHRINE
  7. CYMBALTA [Concomitant]
     Active Substance: DULOXETINE HYDROCHLORIDE
  8. CARBIDOPA AND LEVODOPA [Concomitant]
     Active Substance: CARBIDOPA\LEVODOPA
  9. SODIUM CHLORIDE [Concomitant]
     Active Substance: SODIUM CHLORIDE
  10. BACLOFEN [Concomitant]
     Active Substance: BACLOFEN
  11. LORAZEPAM [Concomitant]
     Active Substance: LORAZEPAM
  12. HEPARIN [Concomitant]
     Active Substance: HEPARIN SODIUM
  13. LIDOCAINE [Concomitant]
     Active Substance: LIDOCAINE
  14. DIPHENHYDRAMINE HYDROCHLORIDE [Concomitant]
     Active Substance: DIPHENHYDRAMINE HYDROCHLORIDE
  15. GABAPENTIN [Concomitant]
     Active Substance: GABAPENTIN
  16. SINEMET [Concomitant]
     Active Substance: CARBIDOPA\LEVODOPA
  17. ENTACAPONE [Concomitant]
     Active Substance: ENTACAPONE
  18. METHENAMINE HIPPURATE [Concomitant]
     Active Substance: METHENAMINE HIPPURATE
  19. ZOLPIDEM TARTRATE [Concomitant]
     Active Substance: ZOLPIDEM TARTRATE
  20. LEVOFLOXACIN [Concomitant]
     Active Substance: LEVOFLOXACIN
  21. PREGABALIN [Concomitant]
     Active Substance: PREGABALIN
  22. MIRTAZAPINE [Concomitant]
     Active Substance: MIRTAZAPINE
  23. DIPHENHYDRAMINE [Concomitant]
     Active Substance: DIPHENHYDRAMINE
  24. VITAMIN B [Concomitant]
     Active Substance: VITAMIN B
  25. DICLOFENAC SODIUM [Concomitant]
     Active Substance: DICLOFENAC SODIUM
  26. LATANOPROST [Concomitant]
     Active Substance: LATANOPROST
  27. DIPHENHYDRAMINE HYDROCHLORIDE [Concomitant]
     Active Substance: DIPHENHYDRAMINE HYDROCHLORIDE
  28. MYRBETRIQ [Concomitant]
     Active Substance: MIRABEGRON
  29. OXYGEN [Concomitant]
     Active Substance: OXYGEN

REACTIONS (7)
  - Pneumonia aspiration [Recovered/Resolved]
  - Hydronephrosis [Unknown]
  - Respiratory tract infection [Unknown]
  - Wound infection [Unknown]
  - Muscle contracture [Unknown]
  - Urinary tract infection [Unknown]
  - Product use in unapproved indication [Unknown]

NARRATIVE: CASE EVENT DATE: 20211028
